FAERS Safety Report 11929546 (Version 1)
Quarter: 2016Q1

REPORT INFORMATION
  Report Type: Spontaneous
  Country: US (occurrence: None)
  Receive Date: 20160119
  Receipt Date: 20160119
  Transmission Date: 20160526
  Serious: Yes (Hospitalization, Disabling, Other)
  Sender: FDA-Public Use
  Company Number: None

PATIENT
  Age: 60 Year
  Sex: Female
  Weight: 72.58 kg

DRUGS (18)
  1. CLONAZEPAM 1MG MANY GENERIC [Suspect]
     Active Substance: CLONAZEPAM
     Indication: ANXIETY
     Route: 048
  2. NORTRIPTYLINE [Concomitant]
     Active Substance: NORTRIPTYLINE
  3. EXCEDRINE [Concomitant]
  4. PROZAC [Concomitant]
     Active Substance: FLUOXETINE HYDROCHLORIDE
  5. MAGNESIUM [Concomitant]
     Active Substance: MAGNESIUM
  6. CLONAZEPAM 1MG MANY GENERIC [Suspect]
     Active Substance: CLONAZEPAM
     Indication: DEPRESSION
     Route: 048
  7. WELLBUTRIN-XL [Concomitant]
  8. LAMICTAL [Concomitant]
     Active Substance: LAMOTRIGINE
  9. ALBUTEROL. [Concomitant]
     Active Substance: ALBUTEROL
  10. CLONAZEPAM 1MG MANY GENERIC [Suspect]
     Active Substance: CLONAZEPAM
     Indication: PANIC REACTION
     Route: 048
  11. MUCINEX-DM [Concomitant]
  12. MONTELUKAST [Concomitant]
     Active Substance: MONTELUKAST SODIUM
  13. QVAR [Concomitant]
     Active Substance: BECLOMETHASONE DIPROPIONATE
  14. ALEVE [Concomitant]
     Active Substance: NAPROXEN SODIUM
  15. DIPHENHYDRAMINE. [Concomitant]
     Active Substance: DIPHENHYDRAMINE
  16. ATORVASTATIN [Concomitant]
     Active Substance: ATORVASTATIN
  17. ZYRTEC [Concomitant]
     Active Substance: CETIRIZINE HYDROCHLORIDE
  18. FISH OIL [Concomitant]
     Active Substance: FISH OIL

REACTIONS (4)
  - Suicidal ideation [None]
  - Feeling abnormal [None]
  - Memory impairment [None]
  - Suicide attempt [None]

NARRATIVE: CASE EVENT DATE: 20151013
